FAERS Safety Report 14137725 (Version 2)
Quarter: 2017Q4

REPORT INFORMATION
  Report Type: Spontaneous
  Country: US (occurrence: US)
  Receive Date: 20171027
  Receipt Date: 20171030
  Transmission Date: 20180321
  Serious: Yes (Other)
  Sender: FDA-Public Use
  Company Number: US-TEVA-818417ACC

PATIENT
  Age: 33 Year
  Sex: Female
  Weight: 85.81 kg

DRUGS (19)
  1. LAMICTAL [Concomitant]
     Active Substance: LAMOTRIGINE
  2. SINGULAIR [Concomitant]
     Active Substance: MONTELUKAST SODIUM
  3. VITAMIN D [Concomitant]
     Active Substance: CHOLECALCIFEROL
  4. ATENOLOL. [Concomitant]
     Active Substance: ATENOLOL
  5. CYMBALTA [Concomitant]
     Active Substance: DULOXETINE HYDROCHLORIDE
  6. GABAPENTIN. [Concomitant]
     Active Substance: GABAPENTIN
  7. ZOFRAN [Concomitant]
     Active Substance: ONDANSETRON HYDROCHLORIDE
  8. OXYBUTIN [Concomitant]
     Active Substance: OXYBUTYNIN
  9. EPIPEN [Concomitant]
     Active Substance: EPINEPHRINE
  10. MORPHINE [Concomitant]
     Active Substance: MORPHINE
  11. NORFLEX [Concomitant]
     Active Substance: ORPHENADRINE CITRATE
  12. VITAMIN C [Concomitant]
     Active Substance: ASCORBIC ACID
  13. XANAX [Concomitant]
     Active Substance: ALPRAZOLAM
  14. MECLIZINE [Concomitant]
     Active Substance: MECLIZINE HYDROCHLORIDE
  15. ZANAFLEX [Concomitant]
     Active Substance: TIZANIDINE HYDROCHLORIDE
  16. TETRASINE [Concomitant]
  17. COPAXONE [Suspect]
     Active Substance: GLATIRAMER ACETATE
     Indication: MULTIPLE SCLEROSIS
     Dosage: 20 MILLIGRAM DAILY; ROTATES INJECTION SITES
     Route: 058
  18. CAMRESELO [Concomitant]
     Active Substance: ETHINYL ESTRADIOL\LEVONORGESTREL
  19. NITROFURANTOIN. [Concomitant]
     Active Substance: NITROFURANTOIN

REACTIONS (12)
  - Confusional state [Unknown]
  - Contusion [Unknown]
  - Faecaloma [Not Recovered/Not Resolved]
  - Urinary tract infection [Not Recovered/Not Resolved]
  - Mass [Unknown]
  - Muscle spasms [Unknown]
  - Road traffic accident [Unknown]
  - Back injury [Not Recovered/Not Resolved]
  - Concussion [Not Recovered/Not Resolved]
  - Drug hypersensitivity [Unknown]
  - Joint injury [Unknown]
  - Dyspnoea [Unknown]

NARRATIVE: CASE EVENT DATE: 2017
